FAERS Safety Report 8901479 (Version 1)
Quarter: 2012Q4

REPORT INFORMATION
  Report Type: 
  Country: DE (occurrence: DE)
  Receive Date: 20121108
  Receipt Date: 20121108
  Transmission Date: 20130627
  Serious: Yes (Other)
  Sender: FDA-Public Use
  Company Number: DE-UCBSA-070484

PATIENT
  Sex: Female

DRUGS (5)
  1. NEUPRO [Suspect]
     Indication: RESTLESS LEGS SYNDROME
     Dosage: DAILY DOSE: 3 MG
  2. NEUPRO [Suspect]
     Indication: RESTLESS LEGS SYNDROME
     Dosage: DAILY DOSE: 1MG
  3. VENLAFAXINE [Concomitant]
     Indication: DEPRESSION
     Dosage: DAILY DOSE: 150MG, GW 0-6
  4. TILIDIN [Concomitant]
     Indication: RESTLESS LEGS SYNDROME
     Dosage: DAILY DOSE: 25MG, GW 0-5
  5. INSULIN [Concomitant]
     Indication: GESTATIONAL DIABETES
     Dosage: FROM 34-36.6 GESTATIONAL WEEK

REACTIONS (3)
  - Premature delivery [Recovered/Resolved]
  - Gestational diabetes [Unknown]
  - Pregnancy [Recovered/Resolved]
